FAERS Safety Report 7592447-X (Version None)
Quarter: 2011Q3

REPORT INFORMATION
  Report Type: 
  Country: None (occurrence: None)
  Receive Date: 20110706
  Receipt Date: 20110623
  Transmission Date: 20111222
  Serious: Yes (Disabling)
  Sender: FDA-Public Use
  Company Number: US-KINGPHARMUSA00001-K201100674

PATIENT
  Age: 65 Year
  Sex: Female

DRUGS (2)
  1. ACYCLOVIR [Concomitant]
  2. FLECTOR [Suspect]
     Indication: LIMB INJURY
     Dosage: 1 PATCH, SINGLE
     Route: 061
     Dates: start: 20110513, end: 20110513

REACTIONS (7)
  - BLOOD URINE PRESENT [None]
  - ABDOMINAL DISCOMFORT [None]
  - NAUSEA [None]
  - FEELING ABNORMAL [None]
  - TINNITUS [None]
  - PALPITATIONS [None]
  - HEARING IMPAIRED [None]
